FAERS Safety Report 22276639 (Version 2)
Quarter: 2023Q2

REPORT INFORMATION
  Report Type: Spontaneous
  Country: US (occurrence: US)
  Receive Date: 20230503
  Receipt Date: 20230504
  Transmission Date: 20230721
  Serious: Yes (Other)
  Sender: FDA-Public Use
  Company Number: US-HETERO-HET2023US01032

PATIENT
  Sex: Male
  Weight: 106 kg

DRUGS (3)
  1. ATOVAQUONE [Suspect]
     Active Substance: ATOVAQUONE
     Indication: Meningitis
     Dosage: UNK, TWICE A DAY
     Route: 065
     Dates: start: 2022, end: 20230421
  2. ELIQUIS [Concomitant]
     Active Substance: APIXABAN
     Indication: Anticoagulant therapy
     Dosage: UNK
     Route: 065
  3. SYMTUZA [Concomitant]
     Active Substance: COBICISTAT\DARUNAVIR\EMTRICITABINE\TENOFOVIR ALAFENAMIDE
     Indication: HIV infection
     Dosage: UNK
     Route: 065

REACTIONS (8)
  - Haematochezia [Not Recovered/Not Resolved]
  - Feeling abnormal [Not Recovered/Not Resolved]
  - Scratch [Not Recovered/Not Resolved]
  - Recalled product administered [Unknown]
  - Product use in unapproved indication [Unknown]
  - Diarrhoea [Not Recovered/Not Resolved]
  - Pruritus [Not Recovered/Not Resolved]
  - Nausea [Not Recovered/Not Resolved]
